FAERS Safety Report 23159633 (Version 1)
Quarter: 2023Q4

REPORT INFORMATION
  Report Type: Spontaneous
  Country: US (occurrence: US)
  Receive Date: 20231108
  Receipt Date: 20231108
  Transmission Date: 20240110
  Serious: Yes (Death, Other)
  Sender: FDA-Public Use
  Company Number: US-AMRING PHARMACEUTICALS INC.-2023US004036

PATIENT

DRUGS (2)
  1. SUCCINYLCHOLINE [Suspect]
     Active Substance: SUCCINYLCHOLINE
     Indication: Endotracheal intubation
     Dosage: UNK
     Route: 065
  2. ETOMIDATE [Suspect]
     Active Substance: ETOMIDATE
     Indication: Endotracheal intubation
     Dosage: UNK
     Route: 065

REACTIONS (6)
  - Pulseless electrical activity [Fatal]
  - Cardiac arrest [Fatal]
  - Hyperthermia malignant [Unknown]
  - Hypotension [Unknown]
  - Pyrexia [Unknown]
  - Muscle rigidity [Unknown]
